FAERS Safety Report 18545016 (Version 1)
Quarter: 2020Q4

REPORT INFORMATION
  Report Type: Report from Study
  Country: DE (occurrence: DE)
  Receive Date: 20201125
  Receipt Date: 20201125
  Transmission Date: 20210114
  Serious: Yes (Hospitalization, Other)
  Sender: FDA-Public Use
  Company Number: DE-SHIRE-DE201943391

PATIENT

DRUGS (22)
  1. TEDUGLUTIDE [Suspect]
     Active Substance: TEDUGLUTIDE
     Indication: SHORT-BOWEL SYNDROME
     Dosage: 0.8 MILLIGRAM (0.05 MG/KG TED DAILY DOSE, 7 TED DOSAGE PER WEEK)
     Route: 065
     Dates: start: 20171001
  2. AMPHO-MORONAL [Concomitant]
     Active Substance: AMPHOTERICIN B
     Indication: ANTIFUNGAL TREATMENT
  3. NEFROCARNIT [Concomitant]
     Indication: PRODUCT USED FOR UNKNOWN INDICATION
  4. LASIX [Concomitant]
     Active Substance: FUROSEMIDE
     Indication: DEHYDRATION
  5. FERRLECIT [COPPER SULFATE;FERRIC SODIUM CITRATE;NICOTINAMIDE;THIAMINE [Concomitant]
     Indication: IRON DEFICIENCY ANAEMIA
     Dosage: 10 MG/25 ML, 1/WEEK
     Route: 042
     Dates: start: 20200825
  6. NUROFEN EXPRESS [IBUPROFEN] [Concomitant]
     Indication: PYREXIA
  7. CREON [Concomitant]
     Active Substance: PANCRELIPASE AMYLASE\PANCRELIPASE LIPASE\PANCRELIPASE PROTEASE
     Dosage: 2 TSP, ML WITH EVERY MEAL
     Route: 048
     Dates: start: 20201003
  8. OMNITROPE [Concomitant]
     Active Substance: SOMATROPIN
     Indication: PRODUCT USED FOR UNKNOWN INDICATION
  9. HEPARIN [Concomitant]
     Active Substance: HEPARIN SODIUM
     Indication: WOUND TREATMENT
  10. VITADRAL [Concomitant]
     Indication: VITAMIN A DEFICIENCY
     Dosage: 15 GTT DROPS, QD
     Route: 047
     Dates: start: 20200728
  11. TEDUGLUTIDE [Suspect]
     Active Substance: TEDUGLUTIDE
     Indication: SHORT-BOWEL SYNDROME
     Dosage: 0.8 MILLIGRAM (0.05 MG/KG TED DAILY DOSE, 7 TED DOSAGE PER WEEK)
     Route: 065
     Dates: start: 20171001
  12. OCTENISAN [ALLANTOIN;OCTENIDINE HYDROCHLORIDE] [Concomitant]
     Indication: WOUND TREATMENT
  13. PRONTOSAN [POLIHEXANIDE] [Concomitant]
     Active Substance: POLIHEXANIDE
     Indication: COAGULATION TIME SHORTENED
  14. CREON [Concomitant]
     Active Substance: PANCRELIPASE AMYLASE\PANCRELIPASE LIPASE\PANCRELIPASE PROTEASE
     Indication: PANCREATIC FAILURE
     Dosage: 1 TSP, IF BIG MEAL PORTION
     Route: 048
     Dates: start: 20200728, end: 20201002
  15. TEDUGLUTIDE [Suspect]
     Active Substance: TEDUGLUTIDE
     Indication: SHORT-BOWEL SYNDROME
     Dosage: 0.8 MILLIGRAM (0.05 MG/KG TED DAILY DOSE, 7 TED DOSAGE PER WEEK)
     Route: 065
     Dates: start: 20171001
  16. TEDUGLUTIDE [Suspect]
     Active Substance: TEDUGLUTIDE
     Indication: SHORT-BOWEL SYNDROME
     Dosage: 0.8 MILLIGRAM (0.05 MG/KG TED DAILY DOSE, 7 TED DOSAGE PER WEEK)
     Route: 065
     Dates: start: 20171001
  17. ZINKOROT [Concomitant]
     Active Substance: ZINC OROTATE
     Indication: SUPPLEMENTATION THERAPY
  18. DECOSTRIOL [Concomitant]
     Active Substance: CALCITRIOL
     Indication: VITAMIN D DEFICIENCY
  19. HEPARIN [Concomitant]
     Active Substance: HEPARIN SODIUM
     Indication: THROMBOSIS
  20. LEVOCARNITINE. [Concomitant]
     Active Substance: LEVOCARNITINE
     Indication: CARNITINE DEFICIENCY
  21. ERYTHROPOETIN [EPOETIN ALFA] [Concomitant]
     Indication: PRODUCT USED FOR UNKNOWN INDICATION
  22. FLUCLOXACILINA [FLUCLOXACILLIN] [Concomitant]
     Indication: SEPSIS

REACTIONS (11)
  - Oral herpes [Recovered/Resolved]
  - Device related sepsis [Recovered/Resolved]
  - Infection [Recovered/Resolved]
  - Sepsis [Recovered/Resolved]
  - Generalised oedema [Recovered/Resolved]
  - Vascular device infection [Recovered/Resolved]
  - Viral infection [Recovered/Resolved]
  - Pharyngitis [Recovered/Resolved]
  - Lymphopenia [Recovered/Resolved]
  - Leukopenia [Recovered/Resolved]
  - Fistula [Recovered/Resolved]

NARRATIVE: CASE EVENT DATE: 20191122
